FAERS Safety Report 10017109 (Version 2)
Quarter: 2014Q2

REPORT INFORMATION
  Report Type: Report from Study
  Country: US (occurrence: US)
  Receive Date: 20140318
  Receipt Date: 20140609
  Transmission Date: 20141212
  Serious: Yes (Other)
  Sender: FDA-Public Use
  Company Number: US-ROCHE-1367054

PATIENT
  Age: 59 Year
  Sex: Female
  Weight: 66.74 kg

DRUGS (6)
  1. ACTEMRA [Suspect]
     Indication: RHEUMATOID ARTHRITIS
     Dosage: PATIENT RECEIVED A DOSE OF 320 MG ON 28/MAR/2013, 31/OCT/2013, 26/NOV/2013, 19/DEC/2013 AND 14/JAN/2
     Route: 042
     Dates: start: 20130226
  2. NAPROSYN [Suspect]
     Indication: PRODUCT USED FOR UNKNOWN INDICATION
     Route: 065
  3. FOLATE [Concomitant]
  4. TYLENOL [Concomitant]
     Route: 065
  5. METHOTREXATE [Concomitant]
     Route: 048
     Dates: start: 20061003
  6. TRAZODONE [Concomitant]
     Route: 065

REACTIONS (3)
  - Ear infection [Recovered/Resolved with Sequelae]
  - Deafness [Not Recovered/Not Resolved]
  - White blood cell count decreased [Unknown]
